FAERS Safety Report 5391147-4 (Version None)
Quarter: 2007Q3

REPORT INFORMATION
  Report Type: 
  Country: None (occurrence: None)
  Receive Date: 20070719
  Receipt Date: 20070710
  Transmission Date: 20080115
  Serious: Yes (Hospitalization)
  Sender: FDA-Public Use
  Company Number: PHRM2007FR01843

PATIENT
  Age: 17 Year
  Sex: Female
  Weight: 54 kg

DRUGS (2)
  1. TOFRANIL [Suspect]
     Dosage: 20 MG, ONCE/SINGLE
     Route: 048
     Dates: start: 20070620, end: 20070620
  2. PRIMPERAN /SCH/ [Concomitant]
     Dosage: UNK, PRN
     Route: 048

REACTIONS (3)
  - BLEPHAROSPASM [None]
  - CONVERSION DISORDER [None]
  - MYOCLONUS [None]
